FAERS Safety Report 9724736 (Version 1)
Quarter: 2013Q4

REPORT INFORMATION
  Report Type: Spontaneous
  Country: DE (occurrence: DE)
  Receive Date: 20131202
  Receipt Date: 20131202
  Transmission Date: 20140711
  Serious: Yes (Hospitalization)
  Sender: FDA-Public Use
  Company Number: DE-MYLANLABS-2013S1026065

PATIENT
  Sex: Male
  Weight: 2.98 kg

DRUGS (4)
  1. SERTRALINE [Suspect]
     Dosage: 150 [MG/D ]
     Route: 064
     Dates: start: 20121001, end: 20130605
  2. LIPROLOG [Suspect]
     Route: 064
     Dates: start: 20121001, end: 20130605
  3. LANTUS [Suspect]
     Route: 064
     Dates: start: 20121001, end: 20130605
  4. L-THYROXIN [Concomitant]
     Indication: HYPOTHYROIDISM
     Dosage: 150 [?G/D ]
     Route: 064
     Dates: start: 20121001, end: 20130605

REACTIONS (5)
  - Premature baby [Recovering/Resolving]
  - Neonatal respiratory distress syndrome [Recovered/Resolved]
  - Hyperbilirubinaemia neonatal [Recovered/Resolved]
  - Hypoglycaemia neonatal [Recovered/Resolved]
  - Foetal exposure during pregnancy [Unknown]
